FAERS Safety Report 5696043-0 (Version None)
Quarter: 2008Q2

REPORT INFORMATION
  Report Type: 
  Country: None (occurrence: None)
  Receive Date: 20080407
  Receipt Date: 20080401
  Transmission Date: 20081010
  Serious: Yes (Other)
  Sender: FDA-Public Use
  Company Number: B0360382A

PATIENT
  Sex: Male

DRUGS (3)
  1. PAROXETINE HCL [Suspect]
     Route: 065
     Dates: start: 20011022
  2. PROCHLORPERAZINE [Concomitant]
     Dates: start: 20020211
  3. EFFEXOR [Concomitant]
     Dates: start: 20020221, end: 20030101

REACTIONS (9)
  - COORDINATION ABNORMAL [None]
  - CRYING [None]
  - DIZZINESS [None]
  - DRUG WITHDRAWAL SYNDROME [None]
  - EMOTIONAL DISORDER [None]
  - MALAISE [None]
  - NEUROPATHY PERIPHERAL [None]
  - SEXUAL DYSFUNCTION [None]
  - SUICIDAL IDEATION [None]
